FAERS Safety Report 4478977-8 (Version None)
Quarter: 2004Q3

REPORT INFORMATION
  Report Type: 
  Country: None (occurrence: None)
  Receive Date: 20040923
  Receipt Date: 20040719
  Transmission Date: 20050211
  Serious: No
  Sender: FDA-Public Use
  Company Number: 207959

PATIENT
  Age: 54 Year
  Sex: Female
  Weight: 77.1 kg

DRUGS (2)
  1. AVASTIN [Suspect]
     Indication: COLORECTAL CANCER METASTATIC
     Dosage: INTRAVENOUS
     Route: 042
     Dates: start: 20040618
  2. CHEMO ADMINISTERED REGIMEN  UNKNOWN (GENERIC COMPONENT(S) NOT KNOWN [Concomitant]

REACTIONS (1)
  - DERMATITIS EXFOLIATIVE [None]
